FAERS Safety Report 8581393-0 (Version None)
Quarter: 2012Q3

REPORT INFORMATION
  Report Type: 
  Country: None (occurrence: None)
  Receive Date: 20120809
  Receipt Date: 20120801
  Transmission Date: 20120928
  Serious: Yes (Other)
  Sender: FDA-Public Use
  Company Number: US-US-EMD SERONO, INC.-7152210

PATIENT
  Sex: Male

DRUGS (2)
  1. REBIF [Suspect]
     Indication: MULTIPLE SCLEROSIS
     Route: 058
     Dates: start: 20080101, end: 20111201
  2. REBIF [Suspect]
     Route: 058
     Dates: start: 20120711

REACTIONS (2)
  - PROSTATE CANCER [None]
  - INFLUENZA LIKE ILLNESS [None]
